FAERS Safety Report 9328555 (Version 1)
Quarter: 2013Q2

REPORT INFORMATION
  Report Type: Spontaneous
  Country: US (occurrence: US)
  Receive Date: 20130604
  Receipt Date: 20130604
  Transmission Date: 20140414
  Serious: No
  Sender: FDA-Public Use
  Company Number: US-SANOFI-AVENTIS-2012SA051016

PATIENT
  Age: 62 Year
  Sex: Female
  Weight: 95 kg

DRUGS (9)
  1. LANTUS [Suspect]
     Indication: DIABETES MELLITUS
     Dosage: DOSE:12 UNIT(S)
     Route: 058
     Dates: start: 20120406
  2. LANTUS [Suspect]
     Indication: DIABETES MELLITUS
     Dosage: DOSE:30 UNIT(S)
     Route: 058
  3. LANTUS [Suspect]
     Indication: DIABETES MELLITUS
     Dosage: DOSE:15 UNIT(S)
     Route: 058
  4. LANTUS [Suspect]
     Indication: DIABETES MELLITUS
     Dosage: DOSE:33 UNIT(S)
     Route: 058
  5. LANTUS [Suspect]
     Indication: DIABETES MELLITUS
     Dosage: DOSE:30 UNIT(S)
     Route: 058
  6. LANTUS [Suspect]
     Indication: DIABETES MELLITUS
     Dosage: DOSE:33 UNIT(S)
     Route: 058
     Dates: end: 20120731
  7. CLONIDINE [Concomitant]
     Indication: HYPERTENSION
  8. HYDROCHLOROTHIAZIDE [Concomitant]
     Indication: HYPERTENSION
  9. GLIPIZIDE [Concomitant]
     Indication: BLOOD GLUCOSE INCREASED

REACTIONS (11)
  - Headache [Recovered/Resolved]
  - Neck pain [Recovered/Resolved]
  - Musculoskeletal discomfort [Not Recovered/Not Resolved]
  - Musculoskeletal pain [Recovered/Resolved]
  - Palpitations [Recovered/Resolved]
  - Burning sensation [Recovered/Resolved]
  - Condition aggravated [Recovered/Resolved]
  - Nodule [Unknown]
  - Anxiety [Unknown]
  - Choking sensation [Recovered/Resolved]
  - Pain in extremity [Recovered/Resolved]
